FAERS Safety Report 13784490 (Version 1)
Quarter: 2017Q3

REPORT INFORMATION
  Report Type: Report from Study
  Country: GB (occurrence: GB)
  Receive Date: 20170724
  Receipt Date: 20170724
  Transmission Date: 20171127
  Serious: Yes (Death, Other)
  Sender: FDA-Public Use
  Company Number: GB-AMGEN-GBRNI2016068828

PATIENT
  Age: 86 Year
  Sex: Female

DRUGS (3)
  1. ETANERCEPT [Suspect]
     Active Substance: ETANERCEPT
     Indication: RHEUMATOID ARTHRITIS
     Dosage: UNK
     Route: 058
     Dates: start: 20030911, end: 2007
  2. PARACETAMOL [Concomitant]
     Active Substance: ACETAMINOPHEN
     Dosage: 500 MG, 2X/DAY
  3. FENTANYL. [Concomitant]
     Active Substance: FENTANYL
     Dosage: 12 UG, EVERY 3 DAYS

REACTIONS (2)
  - Lower respiratory tract infection [Fatal]
  - Vascular dementia [Fatal]

NARRATIVE: CASE EVENT DATE: 201406
